FAERS Safety Report 20524702 (Version 1)
Quarter: 2022Q1

REPORT INFORMATION
  Report Type: Spontaneous
  Country: None (occurrence: US)
  Receive Date: 20220228
  Receipt Date: 20220228
  Transmission Date: 20220423
  Serious: No
  Sender: FDA-Public Use
  Company Number: US-Acacia Pharma Limited-2126267

PATIENT

DRUGS (2)
  1. BARHEMSYS [Suspect]
     Active Substance: AMISULPRIDE
     Indication: Procedural nausea
     Route: 042
     Dates: start: 2021, end: 2021
  2. BARHEMSYS [Suspect]
     Active Substance: AMISULPRIDE
     Indication: Procedural vomiting

REACTIONS (1)
  - Infusion site pain [Recovered/Resolved]

NARRATIVE: CASE EVENT DATE: 20210101
